FAERS Safety Report 8409656-X (Version None)
Quarter: 2012Q2

REPORT INFORMATION
  Report Type: 
  Country: None (occurrence: None)
  Receive Date: 20120529
  Receipt Date: 20120514
  Transmission Date: 20120825
  Serious: Yes (Other)
  Sender: FDA-Public Use
  Company Number: US-1191418

PATIENT
  Age: 79 Year
  Sex: Male

DRUGS (1)
  1. BSS [Suspect]
     Dosage: (INTRAOCULAR)
     Route: 031
     Dates: start: 20120328, end: 20120328

REACTIONS (2)
  - TOXIC ANTERIOR SEGMENT SYNDROME [None]
  - POST PROCEDURAL COMPLICATION [None]
